FAERS Safety Report 6173024-4 (Version None)
Quarter: 2009Q2

REPORT INFORMATION
  Report Type: 
  Country: None (occurrence: None)
  Receive Date: 20090428
  Receipt Date: 20090422
  Transmission Date: 20091009
  Serious: Yes (Other)
  Sender: FDA-Public Use
  Company Number: 2009SP008598

PATIENT
  Age: 62 Year
  Sex: Female

DRUGS (1)
  1. TEMODAL [Suspect]
     Indication: DRUG USE FOR UNKNOWN INDICATION
     Dosage: PO
     Route: 048

REACTIONS (4)
  - BLADDER DILATATION [None]
  - DYSPHAGIA [None]
  - DYSURIA [None]
  - HYPOPHAGIA [None]
